FAERS Safety Report 7608152-7 (Version None)
Quarter: 2011Q3

REPORT INFORMATION
  Report Type: 
  Country: None (occurrence: None)
  Receive Date: 20110712
  Receipt Date: 20110513
  Transmission Date: 20111222
  Serious: No
  Sender: FDA-Public Use
  Company Number: DL2011-0348

PATIENT
  Age: 29 Year
  Sex: Female

DRUGS (3)
  1. MISOPROSTOL [Suspect]
     Dosage: 800 MCG,BUCCAL
     Route: 002
  2. DOXYCYCLINE [Concomitant]
  3. MIFEPRISTONE (MIFEPREX) [Suspect]
     Indication: ABORTION INDUCED
     Dosage: 200 MG,ORAL
     Route: 048
     Dates: start: 20110222

REACTIONS (1)
  - PREGNANCY [None]
